FAERS Safety Report 6282159-7 (Version None)
Quarter: 2009Q3

REPORT INFORMATION
  Report Type: 
  Country: None (occurrence: None)
  Receive Date: 20090721
  Receipt Date: 20090721
  Transmission Date: 20100115
  Serious: Yes (Hospitalization)
  Sender: FDA-Public Use
  Company Number: None

PATIENT
  Sex: Male
  Weight: 96 kg

DRUGS (4)
  1. FLUOROURACIL [Suspect]
     Dosage: 8158 MG
     Dates: end: 20090526
  2. BEVACIZUMAB (RHUMAB VEGF) [Suspect]
     Dosage: 909 MG
     Dates: end: 20090526
  3. LEUCOVORIN CALCIUM [Suspect]
     Dosage: 1344 MG
     Dates: end: 20090526
  4. ELOXATIN [Suspect]
     Dosage: 273 MG
     Dates: end: 20090526

REACTIONS (6)
  - ASTHENIA [None]
  - DYSPNOEA [None]
  - FALL [None]
  - FATIGUE [None]
  - PULMONARY EMBOLISM [None]
  - ULCER [None]
